FAERS Safety Report 17113078 (Version 3)
Quarter: 2021Q4

REPORT INFORMATION
  Report Type: Spontaneous
  Country: US (occurrence: US)
  Receive Date: 20191204
  Receipt Date: 20211201
  Transmission Date: 20220303
  Serious: Yes (Disabling, Other)
  Sender: FDA-Public Use
  Company Number: US-BIOMARINAP-US-2019-127158

PATIENT
  Age: 6 Year
  Sex: Female

DRUGS (2)
  1. ALDURAZYME [Suspect]
     Active Substance: LARONIDASE
     Indication: Mucopolysaccharidosis I
     Dosage: 11.6 MILLIGRAM, QW
     Route: 041
     Dates: start: 20170125
  2. ALDURAZYME [Suspect]
     Active Substance: LARONIDASE
     Dosage: 14.5 MILLIGRAM, QW
     Route: 041
     Dates: start: 20170125

REACTIONS (6)
  - Pneumonia [Recovered/Resolved]
  - Cough [Recovered/Resolved]
  - Deafness bilateral [Recovering/Resolving]
  - Trigger finger [Recovering/Resolving]
  - Carpal tunnel syndrome [Recovering/Resolving]
  - Tendon sheath incision [Recovering/Resolving]
